FAERS Safety Report 21778539 (Version 2)
Quarter: 2023Q1

REPORT INFORMATION
  Report Type: Spontaneous
  Country: US (occurrence: US)
  Receive Date: 20221226
  Receipt Date: 20230324
  Transmission Date: 20230418
  Serious: No
  Sender: FDA-Public Use
  Company Number: US-DSJP-DSU-2022-146134

PATIENT
  Age: 58 Year
  Sex: Female
  Weight: 51 kg

DRUGS (1)
  1. ENHERTU [Suspect]
     Active Substance: FAM-TRASTUZUMAB DERUXTECAN-NXKI
     Indication: Breast cancer
     Dosage: 4.4 MG/KG, ONCE EVERY 3 WK
     Route: 065
     Dates: start: 20220315

REACTIONS (1)
  - Chills [Unknown]
